FAERS Safety Report 6735931-0 (Version None)
Quarter: 2010Q2

REPORT INFORMATION
  Report Type: 
  Country: None (occurrence: None)
  Receive Date: 20100521
  Receipt Date: 20100517
  Transmission Date: 20101027
  Serious: Yes (Hospitalization)
  Sender: FDA-Public Use
  Company Number: B0648683A

PATIENT
  Sex: Female

DRUGS (3)
  1. AUGMENTIN '125' [Suspect]
     Indication: PULMONARY EMBOLISM
     Dosage: 4UNIT CUMULATIVE DOSE
     Route: 042
     Dates: start: 20100409, end: 20100410
  2. OFLOCET [Suspect]
     Indication: PULMONARY EMBOLISM
     Dosage: 2UNIT CUMULATIVE DOSE
     Route: 048
     Dates: start: 20100409, end: 20100410
  3. LOVENOX [Suspect]
     Indication: PULMONARY EMBOLISM
     Dosage: 1UNIT CUMULATIVE DOSE
     Route: 058
     Dates: start: 20100409, end: 20100410

REACTIONS (5)
  - DIARRHOEA [None]
  - INFLAMMATION [None]
  - RASH ERYTHEMATOUS [None]
  - RASH MORBILLIFORM [None]
  - URTICARIA [None]
